FAERS Safety Report 13133880 (Version 1)
Quarter: 2017Q1

REPORT INFORMATION
  Report Type: Report from Study
  Country: NL (occurrence: NL)
  Receive Date: 20170120
  Receipt Date: 20170120
  Transmission Date: 20170428
  Serious: Yes (Other)
  Sender: FDA-Public Use
  Company Number: PHHY2017NL006765

PATIENT
  Sex: Male

DRUGS (1)
  1. SANDOSTATIN LAR DEPOT [Suspect]
     Active Substance: OCTREOTIDE ACETATE
     Indication: MACULAR OEDEMA
     Dosage: 20 MG, QMO (MG/2 ML, 1 PER 4 WEEKS)
     Route: 030

REACTIONS (2)
  - Product use issue [Unknown]
  - Terminal state [Unknown]
